FAERS Safety Report 25104779 (Version 1)
Quarter: 2025Q1

REPORT INFORMATION
  Report Type: Spontaneous
  Country: US (occurrence: US)
  Receive Date: 20250321
  Receipt Date: 20250321
  Transmission Date: 20250409
  Serious: No
  Sender: MYLAN
  Company Number: US-MYLANLABS-2025M1022179

PATIENT
  Age: 73 Year
  Sex: Female
  Weight: 49.9 kg

DRUGS (1)
  1. ESTRADIOL TRANSDERMAL SYSTEM [Suspect]
     Active Substance: ESTRADIOL
     Indication: Menopausal symptoms
     Dosage: 0.05 MILLIGRAM, QD (PER DAY, ONCE WEEKLY)

REACTIONS (3)
  - Application site rash [Not Recovered/Not Resolved]
  - Application site hypersensitivity [Not Recovered/Not Resolved]
  - Application site pruritus [Not Recovered/Not Resolved]

NARRATIVE: CASE EVENT DATE: 20241001
